FAERS Safety Report 13483777 (Version 1)
Quarter: 2017Q2

REPORT INFORMATION
  Report Type: Spontaneous
  Country: US (occurrence: US)
  Receive Date: 20170425
  Receipt Date: 20170425
  Transmission Date: 20170830
  Serious: No
  Sender: FDA-Public Use
  Company Number: None

PATIENT
  Age: 52 Year
  Sex: Female
  Weight: 76.5 kg

DRUGS (6)
  1. ZOLPIDEM [Concomitant]
     Active Substance: ZOLPIDEM\ZOLPIDEM TARTRATE
  2. MOTRIN [Concomitant]
     Active Substance: IBUPROFEN
  3. BACLOFEN. [Concomitant]
     Active Substance: BACLOFEN
  4. CARBAMAZEPINE. [Suspect]
     Active Substance: CARBAMAZEPINE
     Indication: PAIN
     Route: 048
     Dates: start: 20170328, end: 20170423
  5. HYDROCODONE [Concomitant]
     Active Substance: HYDROCODONE
  6. GABAPENTIN. [Concomitant]
     Active Substance: GABAPENTIN

REACTIONS (13)
  - Arthropathy [None]
  - Memory impairment [None]
  - Renal pain [None]
  - Muscle disorder [None]
  - Visual impairment [None]
  - Speech disorder [None]
  - Therapy cessation [None]
  - Dizziness [None]
  - Ear discomfort [None]
  - Neuralgia [None]
  - Headache [None]
  - Chills [None]
  - Chest pain [None]

NARRATIVE: CASE EVENT DATE: 20170422
